FAERS Safety Report 6470934-5 (Version None)
Quarter: 2009Q4

REPORT INFORMATION
  Report Type: 
  Country: None (occurrence: None)
  Receive Date: 20091203
  Receipt Date: 20080331
  Transmission Date: 20100525
  Serious: Yes (Other)
  Sender: FDA-Public Use
  Company Number: IN-ELI_LILLY_AND_COMPANY-IN200801002178

PATIENT
  Sex: Male
  Weight: 47 kg

DRUGS (10)
  1. HUMAN INSULIN INHALED POWDER [Suspect]
     Indication: TYPE 1 DIABETES MELLITUS
     Dosage: 32 IU, UNK
     Route: 055
     Dates: start: 20070528, end: 20070716
  2. HUMAN INSULIN INHALED POWDER [Suspect]
     Dosage: 21 IU, UNK
     Route: 055
     Dates: start: 20070722, end: 20070823
  3. LISPRO REGLISPRO [Suspect]
     Indication: TYPE 1 DIABETES MELLITUS
     Dates: start: 20070717, end: 20070721
  4. LISPRO REGLISPRO [Suspect]
     Dates: start: 20070823
  5. INSULIN GLARGINE [Suspect]
     Indication: TYPE 1 DIABETES MELLITUS
     Dates: start: 20051224
  6. THYROX [Concomitant]
     Indication: HYPOTHYROIDISM
     Dosage: 175 MCG
     Route: 048
     Dates: start: 20070719
  7. TERTROXIN [Concomitant]
     Indication: SECONDARY HYPOGONADISM
     Dosage: 20 UG, UNKNOWN
     Dates: start: 20051214
  8. FEFOL [Concomitant]
     Indication: MINERAL SUPPLEMENTATION
     Dosage: UNK, UNK
     Route: 048
     Dates: start: 20070522, end: 20071024
  9. SHELCAL [Concomitant]
     Indication: MINERAL SUPPLEMENTATION
     Dosage: 250 MG,
     Route: 048
     Dates: start: 20070718
  10. FLUCORT [Concomitant]
     Indication: PHOTOSENSITIVITY REACTION
     Dosage: UNK, UNK
     Route: 058
     Dates: start: 20070407

REACTIONS (1)
  - ALVEOLITIS ALLERGIC [None]
